FAERS Safety Report 5926910-1 (Version None)
Quarter: 2008Q4

REPORT INFORMATION
  Report Type: 
  Country: None (occurrence: None)
  Receive Date: 20081022
  Receipt Date: 20081014
  Transmission Date: 20090506
  Serious: Yes (Other)
  Sender: FDA-Public Use
  Company Number: BR-ABBOTT-08P-020-0481794-00

PATIENT
  Sex: Female
  Weight: 53 kg

DRUGS (5)
  1. DEPAKOTE [Suspect]
     Indication: PANIC DISORDER
     Route: 048
     Dates: start: 20080905
  2. DEPAKOTE [Suspect]
     Indication: ANXIETY
  3. ENALAPRIL MALEATE [Concomitant]
     Indication: HYPERTENSION
     Route: 048
  4. CLOXAZOLAM [Concomitant]
     Indication: ANXIETY
     Route: 048
  5. CITALOPRAM HYDROBROMIDE [Concomitant]
     Indication: ANXIETY
     Route: 048

REACTIONS (7)
  - BONE PAIN [None]
  - DRY SKIN [None]
  - GAIT DISTURBANCE [None]
  - HAIR TEXTURE ABNORMAL [None]
  - MYALGIA [None]
  - SALPINGO-OOPHORECTOMY BILATERAL [None]
  - SOMNOLENCE [None]
